FAERS Safety Report 8256977-X (Version None)
Quarter: 2012Q2

REPORT INFORMATION
  Report Type: 
  Country: None (occurrence: None)
  Receive Date: 20120403
  Receipt Date: 20120330
  Transmission Date: 20120825
  Serious: Yes (Hospitalization)
  Sender: FDA-Public Use
  Company Number: US-GLAXOSMITHKLINE-A0903161A

PATIENT
  Age: 74 Year
  Sex: Male
  Weight: 117.7 kg

DRUGS (3)
  1. PLAVIX [Concomitant]
  2. METOPROLOL SUCCINATE [Concomitant]
  3. AVANDIA [Suspect]
     Indication: DIABETES MELLITUS
     Dosage: 4MG PER DAY
     Route: 048
     Dates: start: 20050713, end: 20061001

REACTIONS (4)
  - CARDIOVASCULAR DISORDER [None]
  - CARDIAC FAILURE [None]
  - ANAEMIA [None]
  - CEREBROVASCULAR ACCIDENT [None]
